FAERS Safety Report 12261315 (Version 4)
Quarter: 2016Q2

REPORT INFORMATION
  Report Type: Report from Study
  Country: CL (occurrence: CL)
  Receive Date: 20160412
  Receipt Date: 20160623
  Transmission Date: 20160815
  Serious: Yes (Hospitalization)
  Sender: FDA-Public Use
  Company Number: CL-BIOMARINAP-CL-2015-109457

PATIENT
  Age: 8 Year
  Sex: Female
  Weight: 23 kg

DRUGS (1)
  1. ALDURAZYME [Suspect]
     Active Substance: LARONIDASE
     Indication: MUCOPOLYSACCHARIDOSIS I
     Dosage: UNK UNK, QW
     Route: 042
     Dates: start: 20090903

REACTIONS (3)
  - Respiratory symptom [Recovered/Resolved]
  - Pyrexia [Recovered/Resolved]
  - Respiratory tract infection viral [Recovered/Resolved]

NARRATIVE: CASE EVENT DATE: 20160328
